FAERS Safety Report 14418786 (Version 2)
Quarter: 2018Q1

REPORT INFORMATION
  Report Type: Report from Study
  Country: US (occurrence: US)
  Receive Date: 20180122
  Receipt Date: 20180208
  Transmission Date: 20180509
  Serious: No
  Sender: FDA-Public Use
  Company Number: PHEH2018US002633

PATIENT
  Sex: Male
  Weight: 95.7 kg

DRUGS (2)
  1. GLEEVEC [Suspect]
     Active Substance: IMATINIB MESYLATE
     Dosage: 200 MG, QD
     Route: 048
  2. GLEEVEC [Suspect]
     Active Substance: IMATINIB MESYLATE
     Indication: GASTROINTESTINAL STROMAL TUMOUR
     Dosage: 400 MG, UNK
     Route: 048
     Dates: start: 201709

REACTIONS (6)
  - Dry skin [Unknown]
  - Rash [Recovering/Resolving]
  - Skin lesion [Unknown]
  - Wound [Unknown]
  - Neoplasm [Unknown]
  - Skin exfoliation [Unknown]
